FAERS Safety Report 25338789 (Version 4)
Quarter: 2025Q3

REPORT INFORMATION
  Report Type: Report from Study
  Country: CA (occurrence: CA)
  Receive Date: 20250520
  Receipt Date: 20250729
  Transmission Date: 20251021
  Serious: Yes (Hospitalization)
  Sender: ABBVIE
  Company Number: CA-ABBVIE-6278756

PATIENT
  Sex: Female

DRUGS (1)
  1. VYALEV [Suspect]
     Active Substance: FOSCARBIDOPA\FOSLEVODOPA
     Indication: Product used for unknown indication
     Route: 058
     Dates: start: 20241105

REACTIONS (15)
  - Urinary tract infection [Unknown]
  - Confusional state [Unknown]
  - Infusion site infection [Recovered/Resolved]
  - Abdominal infection [Unknown]
  - Cognitive disorder [Unknown]
  - Tremor [Unknown]
  - Pyrexia [Unknown]
  - Erythema [Unknown]
  - Sepsis [Unknown]
  - Infusion site infection [Recovering/Resolving]
  - Parkinson^s disease [Unknown]
  - Hallucination [Unknown]
  - Gait disturbance [Unknown]
  - Freezing phenomenon [Unknown]
  - Loss of personal independence in daily activities [Unknown]
